FAERS Safety Report 7991543-2 (Version None)
Quarter: 2011Q4

REPORT INFORMATION
  Report Type: 
  Country: None (occurrence: None)
  Receive Date: 20111219
  Receipt Date: 20111207
  Transmission Date: 20120403
  Serious: Yes (Other)
  Sender: FDA-Public Use
  Company Number: JP-TEVA-309088USA

PATIENT
  Sex: Male

DRUGS (14)
  1. FAMOTIDINE [Concomitant]
     Dosage: 4 GRAM;
     Route: 048
     Dates: start: 20100403
  2. ZINC ACETATE 25 MG + 50 MG CAPSULES [Suspect]
     Indication: HEPATO-LENTICULAR DEGENERATION
     Dosage: 150 MILLIGRAM;
     Route: 048
     Dates: start: 20101003
  3. LACTITOL [Concomitant]
     Dosage: 36 GRAM;
     Route: 048
     Dates: start: 20080403
  4. REBAMIPIDE [Concomitant]
     Route: 048
     Dates: start: 20100403
  5. MADOPAR                            /00349201/ [Concomitant]
     Route: 048
     Dates: start: 20080403
  6. DANTROLENE SODIUM [Concomitant]
     Route: 048
     Dates: start: 20100403
  7. TRIHEXYPHENIDYL HCL [Concomitant]
     Route: 048
     Dates: start: 20080403
  8. AMANTADINE HCL [Concomitant]
     Route: 048
     Dates: start: 20080403
  9. LOXOPROFEN [Concomitant]
     Route: 048
     Dates: start: 20080403
  10. HALOPERIDOL [Concomitant]
     Route: 048
     Dates: start: 20080403
  11. CARBAMAZEPINE [Concomitant]
     Route: 048
     Dates: start: 20080403
  12. BIPERIDEN HYDROCHLORIDE TAB [Concomitant]
     Route: 048
     Dates: start: 20080403
  13. ROPINIROLE HYDROCHLORIDE [Concomitant]
     Route: 048
     Dates: start: 20080403
  14. QUETIAPINE [Concomitant]
     Route: 048
     Dates: start: 20080403

REACTIONS (1)
  - ANAEMIA [None]
